FAERS Safety Report 8521190 (Version 3)
Quarter: 2024Q4

REPORT INFORMATION
  Report Type: Spontaneous
  Country: US (occurrence: US)
  Receive Date: 20120419
  Receipt Date: 20241213
  Transmission Date: 20250115
  Serious: Yes (Other)
  Sender: RANBAXY
  Company Number: US-RANBAXY-2012US-55602

PATIENT
  Age: 84 Year
  Sex: Female

DRUGS (1)
  1. DOXYCYCLINE [Suspect]
     Active Substance: DOXYCYCLINE
     Indication: Dental care
     Dosage: UNK
     Route: 065

REACTIONS (1)
  - Acute cutaneous lupus erythematosus [Unknown]
